FAERS Safety Report 5096518-1 (Version None)
Quarter: 2006Q3

REPORT INFORMATION
  Report Type: 
  Country: None (occurrence: None)
  Receive Date: 20060830
  Receipt Date: 20060817
  Transmission Date: 20061208
  Serious: Yes (Hospitalization)
  Sender: FDA-Public Use
  Company Number: ES200608004129

PATIENT
  Age: 78 Year
  Sex: Female

DRUGS (10)
  1. FORTEO [Suspect]
     Indication: OSTEOPOROSIS
     Dosage: 20 UG, DAILY (1/D), SUBCUTANEOUS
     Route: 058
     Dates: start: 20060201
  2. FORTEO [Concomitant]
  3. ALPRAZOLAM [Concomitant]
  4. NOLOTIL (DEXTROPROPOXYPHENE, METAMIZOLE MAGNESIUM) [Concomitant]
  5. CARDURAN (DOXAZOSIN MESILATE) [Concomitant]
  6. ZANIDIP (LERCANIDIPINE HYDROCHLORIDE) [Concomitant]
  7. PARIZAC (OMERPRAZOLE) [Concomitant]
  8. DIOVAN [Concomitant]
  9. HIDROFEROL (CALCIFEDIOL) [Concomitant]
  10. PARACETAMOL [Concomitant]

REACTIONS (2)
  - ANXIETY [None]
  - HYPERTENSION [None]
